FAERS Safety Report 20706200 (Version 1)
Quarter: 2022Q2

REPORT INFORMATION
  Report Type: Report from Study
  Country: US (occurrence: US)
  Receive Date: 20220413
  Receipt Date: 20220413
  Transmission Date: 20220721
  Serious: Yes (Other)
  Sender: FDA-Public Use
  Company Number: US-GILEAD-2022-0576806

PATIENT
  Age: 64 Year
  Sex: Female

DRUGS (12)
  1. AVIPTADIL [Suspect]
     Active Substance: AVIPTADIL
     Indication: COVID-19
     Dosage: UNK
     Route: 065
     Dates: start: 20220104, end: 20220106
  2. PLACEBO [Suspect]
     Active Substance: UNSPECIFIED INGREDIENT
     Indication: COVID-19
     Dosage: UNK
     Route: 065
     Dates: start: 20220104, end: 20220106
  3. REMDESIVIR [Suspect]
     Active Substance: REMDESIVIR
     Indication: COVID-19
     Dosage: UNK
     Route: 065
     Dates: start: 20220104, end: 20220106
  4. AVIPTADIL [Suspect]
     Active Substance: AVIPTADIL
     Dosage: UNK
     Route: 065
     Dates: start: 20220104, end: 20220113
  5. PLACEBO [Suspect]
     Active Substance: UNSPECIFIED INGREDIENT
     Dosage: UNK
     Route: 065
     Dates: start: 20220104, end: 20220113
  6. REMDESIVIR [Suspect]
     Active Substance: REMDESIVIR
     Dosage: UNK
     Route: 065
     Dates: start: 20220104, end: 20220113
  7. AVIPTADIL [Suspect]
     Active Substance: AVIPTADIL
     Dosage: UNK
     Route: 065
     Dates: start: 20220215, end: 20220322
  8. PLACEBO [Suspect]
     Active Substance: UNSPECIFIED INGREDIENT
     Dosage: UNK
     Route: 065
     Dates: start: 20220215, end: 20220322
  9. REMDESIVIR [Suspect]
     Active Substance: REMDESIVIR
     Dosage: UNK
     Route: 065
     Dates: start: 20220215, end: 20220322
  10. DEXAMETHASONE [Suspect]
     Active Substance: DEXAMETHASONE
     Indication: Product used for unknown indication
     Route: 065
  11. GABAPENTIN [Concomitant]
     Active Substance: GABAPENTIN
  12. BARICITINIB [Concomitant]
     Active Substance: BARICITINIB

REACTIONS (1)
  - Herpes zoster [Not Recovered/Not Resolved]

NARRATIVE: CASE EVENT DATE: 20220116
